FAERS Safety Report 19680188 (Version 1)
Quarter: 2021Q3

REPORT INFORMATION
  Report Type: Spontaneous
  Country: IN (occurrence: IN)
  Receive Date: 20210810
  Receipt Date: 20210810
  Transmission Date: 20211014
  Serious: Yes (Death)
  Sender: FDA-Public Use
  Company Number: IN-PFIZER INC-2020353525

PATIENT
  Age: 66 Year
  Sex: Female

DRUGS (5)
  1. PALBACE [Suspect]
     Active Substance: PALBOCICLIB
     Dosage: 125 MG, 1X/DAY
     Route: 048
     Dates: start: 20210601
  2. ZOLDONAT [Concomitant]
     Dosage: UNK, MONTHLY
  3. CIPCAL [Concomitant]
     Dosage: 500 (UNIT UNSPECIFIED), MONTHLY
  4. PALBACE [Suspect]
     Active Substance: PALBOCICLIB
     Indication: BREAST CANCER METASTATIC
     Dosage: 125 MG, 1X/DAY
     Route: 048
     Dates: start: 20190821
  5. OMEGA 3 + VITAMIN D [Concomitant]
     Dosage: UNK, MONTHLY

REACTIONS (2)
  - Product dose omission issue [Unknown]
  - Death [Fatal]
